FAERS Safety Report 4515167-4 (Version None)
Quarter: 2004Q4

REPORT INFORMATION
  Report Type: 
  Country: None (occurrence: None)
  Receive Date: 20041126
  Receipt Date: 20041111
  Transmission Date: 20050328
  Serious: Yes (Hospitalization)
  Sender: FDA-Public Use
  Company Number: 2004067023

PATIENT
  Age: 3 Year
  Sex: Male
  Weight: 16 kg

DRUGS (10)
  1. ZITHROMAX [Suspect]
     Indication: NASOPHARYNGITIS
     Dosage: (1 D), ORAL
     Route: 048
     Dates: start: 20040830, end: 20040906
  2. ZITHROMAX [Suspect]
     Indication: PNEUMONIA MYCOPLASMAL
     Dosage: (1 D), ORAL
     Route: 048
     Dates: start: 20040830, end: 20040906
  3. THEOPHYLLINE [Concomitant]
  4. TIPEPIDINE HIBENZATE (TIPEPIDINE HIBENZATE) [Concomitant]
  5. CARBOCISTEINE (CARBOCISTEINE) [Concomitant]
  6. CYPROHEPTADINE HCL [Concomitant]
  7. PROCATEROL HCL [Concomitant]
  8. TULOBUTEROL HYDROCHLORIDE (TULOBUTEROL HYDROCHLORIDE) [Concomitant]
  9. SODIUM BICARBONATE IN PLASTIC CONTAINER [Concomitant]
  10. CROMOGLICATE SODIUM (CROMOGLICATE SODIUM) [Concomitant]

REACTIONS (6)
  - ASTHMA [None]
  - CONDITION AGGRAVATED [None]
  - PNEUMONIA MYCOPLASMAL [None]
  - STEVENS-JOHNSON SYNDROME [None]
  - THERAPY NON-RESPONDER [None]
  - URTICARIA [None]
